FAERS Safety Report 23877867 (Version 1)
Quarter: 2024Q2

REPORT INFORMATION
  Report Type: Report from Study
  Country: MX (occurrence: MX)
  Receive Date: 20240521
  Receipt Date: 20240521
  Transmission Date: 20240715
  Serious: Yes (Hospitalization, Disabling)
  Sender: FDA-Public Use
  Company Number: MX-TAKEDA-2022TUS083706

PATIENT
  Age: 49 Year
  Sex: Male
  Weight: 79 kg

DRUGS (2)
  1. PONATINIB [Suspect]
     Active Substance: PONATINIB
     Indication: Chronic myeloid leukaemia
     Dosage: 45 MILLIGRAM
     Route: 048
     Dates: start: 20220805, end: 20221014
  2. PONATINIB [Suspect]
     Active Substance: PONATINIB
     Dosage: 45 MILLIGRAM
     Route: 048
     Dates: start: 20221021

REACTIONS (10)
  - Cholelithiasis [Recovering/Resolving]
  - Bladder pain [Recovering/Resolving]
  - Rash macular [Recovering/Resolving]
  - Skin discolouration [Recovering/Resolving]
  - Dry skin [Recovering/Resolving]
  - Skin exfoliation [Recovering/Resolving]
  - Arthralgia [Recovering/Resolving]
  - Rash [Recovering/Resolving]
  - Pruritus [Recovered/Resolved]
  - Skin lesion [Recovered/Resolved]

NARRATIVE: CASE EVENT DATE: 20220901
